FAERS Safety Report 8336542-6 (Version None)
Quarter: 2012Q1

REPORT INFORMATION
  Report Type: 
  Country: None (occurrence: None)
  Receive Date: 20120329
  Receipt Date: 20100204
  Transmission Date: 20120608
  Serious: Yes (Other)
  Sender: FDA-Public Use
  Company Number: PHEH2010US02216

PATIENT
  Age: 83 Year
  Sex: Female
  Weight: 101.6 kg

DRUGS (1)
  1. EXELON [Suspect]
     Dosage: 4.6 MG, QD, TRANSDERMAL
     Route: 062
     Dates: start: 20091215, end: 20100115

REACTIONS (2)
  - ABDOMINAL DISCOMFORT [None]
  - WEIGHT DECREASED [None]
